FAERS Safety Report 22085813 (Version 1)
Quarter: 2023Q1

REPORT INFORMATION
  Report Type: Spontaneous
  Country: US (occurrence: US)
  Receive Date: 20230310
  Receipt Date: 20230310
  Transmission Date: 20230418
  Serious: No
  Sender: FDA-Public Use
  Company Number: US-SA-SAC20230309001744

PATIENT
  Sex: Male
  Weight: 84.36 kg

DRUGS (11)
  1. DUPIXENT [Suspect]
     Active Substance: DUPILUMAB
     Indication: Asthma
     Dosage: 300 MG, QOW
     Route: 058
  2. OZEMPIC [Concomitant]
     Active Substance: SEMAGLUTIDE
     Dosage: OZEMPIC .25 OR 0.5 PEN INJCTR
  3. NABUMETONE [Concomitant]
     Active Substance: NABUMETONE
  4. CARBAMAZEPINE [Concomitant]
     Active Substance: CARBAMAZEPINE
  5. HYDROCHLOROTHIAZIDE [Concomitant]
     Active Substance: HYDROCHLOROTHIAZIDE
  6. LEVOTHYROXINE [Concomitant]
     Active Substance: LEVOTHYROXINE
  7. PANTOPRAZOLE SODIUM [Concomitant]
     Active Substance: PANTOPRAZOLE SODIUM
  8. ATORVASTATIN CALCIUM [Concomitant]
     Active Substance: ATORVASTATIN CALCIUM
  9. ALBUTEROL SULFATE [Concomitant]
     Active Substance: ALBUTEROL SULFATE
  10. ADVAIR HFA [Concomitant]
     Active Substance: FLUTICASONE PROPIONATE\SALMETEROL XINAFOATE
     Dosage: ADVAIR DISKUS 500-50 MCG BLST W/DEV
  11. LUMIGAN [Concomitant]
     Active Substance: BIMATOPROST
     Dosage: LUMIGAN 0.01 % DROPS

REACTIONS (1)
  - Intentional product use issue [Unknown]
